FAERS Safety Report 13859892 (Version 2)
Quarter: 2020Q1

REPORT INFORMATION
  Report Type: Spontaneous
  Country: US (occurrence: US)
  Receive Date: 20170811
  Receipt Date: 20200226
  Transmission Date: 20200409
  Serious: Yes (Other)
  Sender: FDA-Public Use
  Company Number: US-SA-2017SA145305

PATIENT
  Sex: Female

DRUGS (2)
  1. DULCOEASE [Suspect]
     Active Substance: DOCUSATE SODIUM
     Dosage: UNK UNK,UNK
     Route: 065
  2. DULCOEASE [Suspect]
     Active Substance: DOCUSATE SODIUM
     Dosage: UNK

REACTIONS (2)
  - Peripheral vascular disorder [Unknown]
  - Upper limb fracture [Unknown]
